FAERS Safety Report 18839174 (Version 1)
Quarter: 2021Q1

REPORT INFORMATION
  Report Type: Spontaneous
  Country: GB (occurrence: GB)
  Receive Date: 20210203
  Receipt Date: 20210203
  Transmission Date: 20210419
  Serious: Yes (Other)
  Sender: FDA-Public Use
  Company Number: GB-SUN PHARMACEUTICAL INDUSTRIES LTD-2021RR-278891

PATIENT
  Age: 37 Year
  Sex: Male
  Weight: 62 kg

DRUGS (2)
  1. NAPROXEN. [Concomitant]
     Active Substance: NAPROXEN
     Indication: PRODUCT USED FOR UNKNOWN INDICATION
     Dosage: ONE TABLET TO BE TAKEN TWICE A DAY WHEN REQUIRE UNIT DOSE : 2 DF
     Dates: start: 20201207
  2. CODEINE [Suspect]
     Active Substance: CODEINE
     Indication: SCIATICA
     Dosage: ONE OR TWO TABLETS TO BE TAKEN UP TO FOUR TIME...
     Route: 065
     Dates: start: 20201207

REACTIONS (3)
  - Nausea [Unknown]
  - Abdominal pain [Unknown]
  - Hallucination [Recovered/Resolved]

NARRATIVE: CASE EVENT DATE: 20201209
